FAERS Safety Report 9264137 (Version 2)
Quarter: 2013Q2

REPORT INFORMATION
  Report Type: Spontaneous
  Country: US (occurrence: US)
  Receive Date: 20130430
  Receipt Date: 20130510
  Transmission Date: 20140414
  Serious: Yes (Death)
  Sender: FDA-Public Use
  Company Number: US-B.I. PHARMACEUTICALS,INC./RIDGEFIELD-2013-BI-11758BP

PATIENT
  Age: 77 Year
  Sex: Male

DRUGS (5)
  1. PRADAXA [Suspect]
     Indication: ATRIAL FIBRILLATION
     Dosage: 300 MG
     Route: 048
     Dates: start: 2013
  2. LEVOTHYROXINE [Concomitant]
  3. AMLODIPINE [Concomitant]
  4. LISINOPRIL [Concomitant]
  5. CHOLESTATIN [Concomitant]

REACTIONS (1)
  - Sudden death [Fatal]
